FAERS Safety Report 16908182 (Version 5)
Quarter: 2020Q1

REPORT INFORMATION
  Report Type: Spontaneous
  Country: US (occurrence: US)
  Receive Date: 20191011
  Receipt Date: 20200121
  Transmission Date: 20200409
  Serious: No
  Sender: FDA-Public Use
  Company Number: US-PFIZER INC-2019378179

PATIENT
  Age: 44 Year
  Sex: Male

DRUGS (3)
  1. TORISEL [Suspect]
     Active Substance: TEMSIROLIMUS
     Indication: SOFT TISSUE SARCOMA
     Dosage: 25 MG, CYCLIC (EVERY 28 DAYS AS TOLERATED FOR 12 CYCLES)
     Dates: start: 201910
  2. TORISEL [Suspect]
     Active Substance: TEMSIROLIMUS
     Indication: SARCOMA
     Dosage: 30 MG, CYCLIC (30 MG DAY 15 OF 28 DAY CYCLE X2)
  3. TORISEL [Suspect]
     Active Substance: TEMSIROLIMUS
     Indication: NEOPLASM MALIGNANT
     Dosage: UNK (25 MG/ML)

REACTIONS (3)
  - Off label use [Unknown]
  - Product use in unapproved indication [Unknown]
  - Blood bilirubin increased [Unknown]
